FAERS Safety Report 9230058 (Version 1)
Quarter: 2013Q2

REPORT INFORMATION
  Report Type: Spontaneous
  Country: GB (occurrence: GB)
  Receive Date: 20130415
  Receipt Date: 20130415
  Transmission Date: 20140414
  Serious: Yes (Other)
  Sender: FDA-Public Use
  Company Number: GB-JNJFOC-20130403736

PATIENT
  Age: 34 Year
  Sex: Female

DRUGS (5)
  1. XARELTO [Suspect]
     Indication: PULMONARY EMBOLISM
     Route: 048
     Dates: start: 20130315, end: 20130321
  2. XARELTO [Suspect]
     Indication: DEEP VEIN THROMBOSIS
     Route: 048
     Dates: start: 20130315, end: 20130321
  3. FERROUS SULPHATE [Concomitant]
     Indication: ANAEMIA
     Route: 048
     Dates: start: 20130122
  4. CLEXANE [Concomitant]
     Indication: DEEP VEIN THROMBOSIS
     Route: 058
     Dates: start: 20130218
  5. CLEXANE [Concomitant]
     Indication: PULMONARY EMBOLISM
     Route: 058
     Dates: start: 20130218

REACTIONS (2)
  - Abdominal pain [Recovering/Resolving]
  - Nausea [Recovering/Resolving]
